FAERS Safety Report 6286720-5 (Version None)
Quarter: 2009Q3

REPORT INFORMATION
  Report Type: 
  Country: None (occurrence: None)
  Receive Date: 20090716
  Receipt Date: 20080519
  Transmission Date: 20100115
  Serious: Yes (Hospitalization)
  Sender: FDA-Public Use
  Company Number: 137375

PATIENT
  Sex: Female
  Weight: 54.4316 kg

DRUGS (7)
  1. AVONEX [Suspect]
     Indication: MULTIPLE SCLEROSIS
     Dosage: 30 UG;QW;IM
     Route: 030
     Dates: start: 19960101
  2. PRILOSEC [Concomitant]
  3. PROZAC [Concomitant]
  4. PREMARIN [Concomitant]
  5. VITAMINS [Concomitant]
  6. TYLENOL (CAPLET) [Concomitant]
  7. PREV MEDS [Concomitant]

REACTIONS (2)
  - INFLUENZA LIKE ILLNESS [None]
  - MULTIPLE SCLEROSIS RELAPSE [None]
